FAERS Safety Report 25112257 (Version 1)
Quarter: 2025Q1

REPORT INFORMATION
  Report Type: Spontaneous
  Country: US (occurrence: US)
  Receive Date: 20250324
  Receipt Date: 20250324
  Transmission Date: 20250409
  Serious: No
  Sender: UCB
  Company Number: US-UCBSA-2024068311

PATIENT
  Age: 16 Year
  Sex: Male

DRUGS (4)
  1. LEVETIRACETAM [Suspect]
     Active Substance: LEVETIRACETAM
     Indication: Temporal lobe epilepsy
  2. BRIVARACETAM [Suspect]
     Active Substance: BRIVARACETAM
     Indication: Temporal lobe epilepsy
  3. LACOSAMIDE [Suspect]
     Active Substance: LACOSAMIDE
     Indication: Temporal lobe epilepsy
  4. CENOBAMATE [Suspect]
     Active Substance: CENOBAMATE
     Indication: Temporal lobe epilepsy

REACTIONS (2)
  - Multiple-drug resistance [Unknown]
  - Treatment noncompliance [Unknown]
